FAERS Safety Report 8935522 (Version 1)
Quarter: 2012Q4

REPORT INFORMATION
  Report Type: 
  Country: FI (occurrence: FI)
  Receive Date: 20121130
  Receipt Date: 20121130
  Transmission Date: 20130627
  Serious: Yes (Other)
  Sender: FDA-Public Use
  Company Number: PHHY2012FI109080

PATIENT
  Sex: Female

DRUGS (5)
  1. ACLASTA [Suspect]
     Indication: OSTEOPOROSIS
     Dosage: 5mg /100 ml
     Route: 042
     Dates: start: 20121123
  2. SOMAC [Concomitant]
     Dosage: 40 mg, QD
     Route: 048
  3. KALCIPOS-D [Concomitant]
     Dosage: 2 DF, QD
     Route: 048
  4. OCULAC [Concomitant]
     Dosage: a drop, QID
  5. VAGIFEM [Concomitant]
     Dosage: 10 mg, twice a week
     Route: 067

REACTIONS (4)
  - Heart rate increased [Recovered/Resolved]
  - Blood pressure increased [Recovered/Resolved]
  - Palpitations [Recovered/Resolved]
  - Malaise [Recovered/Resolved]
